FAERS Safety Report 5086149-1 (Version None)
Quarter: 2006Q3

REPORT INFORMATION
  Report Type: 
  Country: None (occurrence: None)
  Receive Date: 20060818
  Receipt Date: 20060811
  Transmission Date: 20061208
  Serious: Yes (Other)
  Sender: FDA-Public Use
  Company Number: 2006089996

PATIENT
  Age: 55 Year
  Sex: Female

DRUGS (12)
  1. VORICONAZOLE           (VORICONAZOLE) [Suspect]
     Indication: CANDIDIASIS
     Dosage: 400 MG (200 MG, 2 IN 1 D), ORAL
     Route: 048
     Dates: start: 20041201, end: 20050601
  2. METHOTREXATE [Concomitant]
  3. PREDNISOLONE [Suspect]
  4. LIPITOR [Concomitant]
  5. FUROSEMIDE [Concomitant]
  6. CALCICHEW (CALCIUM CARBONATE) [Concomitant]
  7. AMLODIPINE [Concomitant]
  8. RISEDRONATE (RISEDRONIC ACID) [Concomitant]
  9. BETALOC (METOPROLOL TARTRATE) [Concomitant]
  10. LAMICTAL [Concomitant]
  11. SLOW-K [Concomitant]
  12. ZINC (ZINC) [Concomitant]

REACTIONS (3)
  - PORPHYRIA [None]
  - PSEUDOPORPHYRIA [None]
  - SKIN ULCER [None]
